FAERS Safety Report 7154184-5 (Version None)
Quarter: 2010Q4

REPORT INFORMATION
  Report Type: 
  Country: None (occurrence: None)
  Receive Date: 20101213
  Receipt Date: 20101203
  Transmission Date: 20110411
  Serious: Yes (Hospitalization, Other)
  Sender: FDA-Public Use
  Company Number: US-ELI_LILLY_AND_COMPANY-US201012001036

PATIENT
  Sex: Male

DRUGS (4)
  1. HUMALOG [Suspect]
  2. LANTUS [Concomitant]
     Dosage: 12 U, DAILY (1/D)
     Dates: start: 19980101
  3. PLAVIX [Concomitant]
  4. RISPERDAL [Concomitant]

REACTIONS (5)
  - BLINDNESS [None]
  - DEMENTIA [None]
  - HOSPITALISATION [None]
  - TOE AMPUTATION [None]
  - VASCULAR GRAFT [None]
